FAERS Safety Report 23989011 (Version 3)
Quarter: 2024Q3

REPORT INFORMATION
  Report Type: Spontaneous
  Country: US (occurrence: US)
  Receive Date: 20240619
  Receipt Date: 20240802
  Transmission Date: 20241016
  Serious: Yes (Hospitalization, Other)
  Sender: GLAXOSMITHKLINE
  Company Number: US-GSKCCFUS-Case-02031484_AE-112663

PATIENT

DRUGS (26)
  1. JEMPERLI [Suspect]
     Active Substance: DOSTARLIMAB-GXLY
     Indication: Endometrial cancer
     Dosage: 500 MG
     Route: 042
     Dates: start: 20240514, end: 20240514
  2. ADALIMUMAB [Concomitant]
     Active Substance: ADALIMUMAB
     Indication: Product used for unknown indication
     Dosage: 0.8 ML; EVRY 14 DAYS
     Route: 058
  3. ALBUTEROL [Concomitant]
     Active Substance: ALBUTEROL
     Indication: Product used for unknown indication
     Dosage: 2 PUFF(S), 6D
     Dates: start: 20240104
  4. ASCORBIC ACID [Concomitant]
     Active Substance: ASCORBIC ACID
     Indication: Product used for unknown indication
     Dosage: 1 DF, QD
     Route: 048
  5. ASPIRIN [Concomitant]
     Active Substance: ASPIRIN
     Indication: Product used for unknown indication
     Dosage: 1 DF, QD
     Route: 048
     Dates: end: 20240618
  6. ATORVASTATIN [Concomitant]
     Active Substance: ATORVASTATIN
     Indication: Product used for unknown indication
     Dosage: 1 DF, QD; NIGHT
     Route: 048
     Dates: start: 20240206
  7. BENZONATATE [Concomitant]
     Active Substance: BENZONATATE
     Indication: Product used for unknown indication
     Dosage: 1 DF, TID; AS NEEDED
     Route: 048
     Dates: start: 20231211
  8. CALCIUM CITRATE\VITAMIN D [Concomitant]
     Active Substance: CALCIUM CITRATE\VITAMIN D
     Indication: Product used for unknown indication
     Dosage: UNK
     Route: 048
  9. CLOPIDOGREL [Concomitant]
     Active Substance: CLOPIDOGREL BISULFATE
     Indication: Product used for unknown indication
     Dosage: 1 DF, QD
     Route: 048
     Dates: start: 20240206
  10. TRELEGY ELLIPTA [Concomitant]
     Active Substance: FLUTICASONE FUROATE\UMECLIDINIUM BROMIDE\VILANTEROL TRIFENATATE
     Indication: Product used for unknown indication
     Dosage: 1 PUFF(S), QD; 200-62.5-25 MCG
     Route: 055
     Dates: start: 20240205
  11. FOLIC ACID [Concomitant]
     Active Substance: FOLIC ACID
     Indication: Product used for unknown indication
     Dosage: 2 MG, QD
     Route: 048
  12. LEVOTHYROXINE [Concomitant]
     Active Substance: LEVOTHYROXINE\LEVOTHYROXINE SODIUM
     Indication: Product used for unknown indication
     Dosage: 1 DF, QD
     Route: 048
     Dates: start: 20240121
  13. LIOTHYRONINE [Concomitant]
     Active Substance: LIOTHYRONINE
     Indication: Product used for unknown indication
     Dosage: 1 DF, BID
     Route: 048
     Dates: start: 20240125
  14. METHOTREXATE [Concomitant]
     Active Substance: METHOTREXATE
     Indication: Product used for unknown indication
     Dosage: 6 DF, WE
     Route: 048
     Dates: start: 20240129, end: 20240523
  15. MONTELUKAST [Concomitant]
     Active Substance: MONTELUKAST SODIUM
     Indication: Product used for unknown indication
     Dosage: 1 DF, QD AT NIGHT
     Route: 048
  16. PANTOPRAZOLE [Concomitant]
     Active Substance: PANTOPRAZOLE
     Indication: Product used for unknown indication
     Dosage: 1 DF, QD
     Route: 048
  17. PROMETHAZINE [Concomitant]
     Active Substance: PROMETHAZINE HYDROCHLORIDE
     Indication: Nausea
     Dosage: 1 DF, QID; AS NEEDED
     Route: 048
     Dates: start: 20240213
  18. VENLAFAXINE [Concomitant]
     Active Substance: VENLAFAXINE HYDROCHLORIDE
     Indication: Product used for unknown indication
     Dosage: 1 DF, QD AT NIGHT
     Route: 048
  19. ZOFRAN [Concomitant]
     Active Substance: ONDANSETRON HYDROCHLORIDE
     Indication: Product used for unknown indication
     Dosage: UNK
  20. DEXAMETHASONE SODIUM PHOSPHATE [Concomitant]
     Active Substance: DEXAMETHASONE PHOSPHATE\DEXAMETHASONE SODIUM PHOSPHATE
     Indication: Product used for unknown indication
     Dosage: 20 MG
  21. DIPHENHYDRAMINE [Concomitant]
     Active Substance: DIPHENHYDRAMINE
     Indication: Product used for unknown indication
     Dosage: 50 MG
  22. FAMOTIDINE [Concomitant]
     Active Substance: FAMOTIDINE
     Indication: Product used for unknown indication
     Dosage: 20 MG
  23. PACLITAXEL [Concomitant]
     Active Substance: PACLITAXEL
     Indication: Product used for unknown indication
     Dosage: UNK; 270 MG IN SODIUM CHLORIDE 0.9% 500 ML CHEMO INFUSIONS 270 MG
  24. CARBOPLATIN [Concomitant]
     Active Substance: CARBOPLATIN
     Indication: Product used for unknown indication
     Dosage: UNK;  527.2 MG IN SODIUM CHLORIDE 0.9% 250 ML CHEMO INFUSIONS 527.2 MG
  25. DOSTARLIMAB [Concomitant]
     Active Substance: DOSTARLIMAB
     Indication: Product used for unknown indication
     Dosage: UNK; 500 MG IN SODIUM CHLORIDE 0.9% 100 ML CHEMO INFUSIONS 500 MG
  26. TRAMADOL [Concomitant]
     Active Substance: TRAMADOL\TRAMADOL HYDROCHLORIDE
     Indication: Product used for unknown indication
     Dosage: 1 DF, QID AS NEEDED
     Route: 048

REACTIONS (10)
  - Dehydration [Unknown]
  - Fatigue [Unknown]
  - Electrolyte depletion [Unknown]
  - Uterine cancer [Unknown]
  - Hepatic enzyme increased [Recovering/Resolving]
  - Hypotension [Unknown]
  - Lethargy [Unknown]
  - Mental status changes [Unknown]
  - Carbon dioxide increased [Unknown]
  - Liver function test increased [Recovering/Resolving]

NARRATIVE: CASE EVENT DATE: 20240603
